FAERS Safety Report 23433572 (Version 3)
Quarter: 2024Q1

REPORT INFORMATION
  Report Type: Spontaneous
  Country: US (occurrence: US)
  Receive Date: 20240123
  Receipt Date: 20240305
  Transmission Date: 20240410
  Serious: Yes (Other)
  Sender: FDA-Public Use
  Company Number: US-PFIZER INC-PV202400009263

PATIENT
  Age: 79 Year
  Sex: Male

DRUGS (1)
  1. INLYTA [Suspect]
     Active Substance: AXITINIB
     Dosage: 5 MG

REACTIONS (7)
  - Second primary malignancy [Unknown]
  - Prostate cancer [Unknown]
  - Single functional kidney [Unknown]
  - Dysphonia [Unknown]
  - Nausea [Recovered/Resolved]
  - Urinary incontinence [Unknown]
  - Pruritus [Unknown]
